FAERS Safety Report 5846261-3 (Version None)
Quarter: 2008Q3

REPORT INFORMATION
  Report Type: 
  Country: None (occurrence: None)
  Receive Date: 20080813
  Receipt Date: 20080807
  Transmission Date: 20090109
  Serious: Yes (Other)
  Sender: FDA-Public Use
  Company Number: 2008SP002649

PATIENT
  Age: 47 Year
  Sex: Female
  Weight: 95 kg

DRUGS (6)
  1. VIRAFERONPEG [Suspect]
     Indication: HEPATITIS C
     Dosage: 160 MCG;QD;SC
     Route: 058
     Dates: start: 20070729, end: 20080106
  2. COPEGUS [Suspect]
     Indication: DRUG USE FOR UNKNOWN INDICATION
     Dosage: 1200 MG;QD;PO
     Route: 048
     Dates: start: 20070729, end: 20080106
  3. THYROXINE [Concomitant]
  4. PROPRANOLOL [Concomitant]
  5. CARBIMAZOLE [Concomitant]
  6. DIAZEPAM [Concomitant]

REACTIONS (5)
  - AGITATION [None]
  - HYPERTHYROIDISM [None]
  - INFLUENZA [None]
  - MASS [None]
  - WITHDRAWAL SYNDROME [None]
